FAERS Safety Report 5019124-3 (Version None)
Quarter: 2006Q2

REPORT INFORMATION
  Report Type: 
  Country: None (occurrence: None)
  Receive Date: 20060531
  Receipt Date: 20060522
  Transmission Date: 20061013
  Serious: Yes (Disabling, Other)
  Sender: FDA-Public Use
  Company Number: 2006067270

PATIENT
  Age: 67 Year
  Sex: Female
  Weight: 45.3597 kg

DRUGS (5)
  1. INSPRA [Suspect]
     Indication: HYPERTENSION
     Dosage: (50 MG), ORAL
     Route: 048
     Dates: start: 20060414, end: 20060101
  2. SECTRAL [Concomitant]
  3. VASOTEC [Concomitant]
  4. ATACAND [Concomitant]
  5. ASPIRIN [Concomitant]

REACTIONS (3)
  - DIFFICULTY IN WALKING [None]
  - MYALGIA [None]
  - PAIN IN EXTREMITY [None]
